FAERS Safety Report 16603163 (Version 2)
Quarter: 2019Q3

REPORT INFORMATION
  Report Type: Spontaneous
  Country: US (occurrence: US)
  Receive Date: 20190721
  Receipt Date: 20190723
  Transmission Date: 20191004
  Serious: No
  Sender: FDA-Public Use
  Company Number: US-JNJFOC-20190727637

PATIENT
  Sex: Female

DRUGS (1)
  1. WOMENS ROGAINE UNSCENTED [Suspect]
     Active Substance: MINOXIDIL
     Indication: PRODUCT USED FOR UNKNOWN INDICATION
     Dosage: SMALL AREA ABOVE THE FOREHEAD A QUARTER SIZE AMOUNT WAS USED. ONCE A DAY BEFORE BED
     Route: 061

REACTIONS (2)
  - Application site reaction [Recovered/Resolved]
  - Incorrect dose administered [Recovered/Resolved]
